FAERS Safety Report 7497583-4 (Version None)
Quarter: 2011Q2

REPORT INFORMATION
  Report Type: 
  Country: None (occurrence: None)
  Receive Date: 20110523
  Receipt Date: 20110518
  Transmission Date: 20111010
  Serious: No
  Sender: FDA-Public Use
  Company Number: JP-ABBOTT-11P-087-0722197-00

PATIENT
  Age: 79 Year
  Sex: Male

DRUGS (6)
  1. LYRICA [Concomitant]
     Indication: RHEUMATOID ARTHRITIS
     Route: 048
     Dates: start: 20110301
  2. HUSCODE [Suspect]
     Indication: BRONCHITIS
     Route: 048
     Dates: start: 20110425, end: 20110425
  3. CLARITHROMYCIN [Suspect]
     Indication: BRONCHITIS
     Route: 048
     Dates: start: 20110425, end: 20110425
  4. ROCEPHIN [Concomitant]
     Indication: BRONCHITIS
     Dosage: 1 G, SID
     Route: 042
     Dates: start: 20110425, end: 20110425
  5. PL [Concomitant]
     Indication: BRONCHITIS
     Route: 048
     Dates: start: 20110425, end: 20110425
  6. RIMATIL [Concomitant]
     Indication: RHEUMATOID ARTHRITIS
     Route: 048

REACTIONS (1)
  - FACE OEDEMA [None]
